FAERS Safety Report 4521117-7 (Version None)
Quarter: 2004Q4

REPORT INFORMATION
  Report Type: 
  Country: None (occurrence: None)
  Receive Date: 20041208
  Receipt Date: 20041130
  Transmission Date: 20050328
  Serious: Yes (Hospitalization)
  Sender: FDA-Public Use
  Company Number: AU-ROCHE-388051

PATIENT
  Age: 44 Year
  Sex: Female
  Weight: 47.6 kg

DRUGS (2)
  1. ROCEPHIN [Suspect]
     Indication: CELLULITIS
     Route: 042
     Dates: start: 20040727, end: 20040727
  2. DICLOXACILLIN SODIUM [Suspect]
     Indication: CELLULITIS
     Route: 048
     Dates: start: 20040727, end: 20040727

REACTIONS (3)
  - RASH GENERALISED [None]
  - SWELLING FACE [None]
  - SWOLLEN TONGUE [None]
